FAERS Safety Report 5607511-1 (Version None)
Quarter: 2008Q1

REPORT INFORMATION
  Report Type: 
  Country: None (occurrence: None)
  Receive Date: 20080125
  Receipt Date: 20080121
  Transmission Date: 20080703
  Serious: Yes (Life-Threatening, Hospitalization)
  Sender: FDA-Public Use
  Company Number: 2007-04200

PATIENT
  Age: 80 Year
  Sex: Male
  Weight: 72.8 kg

DRUGS (1)
  1. VELCADE [Suspect]
     Indication: MULTIPLE MYELOMA
     Dosage: 1.30 MG/M2, INTRAVENOUS
     Route: 042
     Dates: start: 20071207, end: 20071210

REACTIONS (2)
  - HYPOTENSION [None]
  - NO THERAPEUTIC RESPONSE [None]
